FAERS Safety Report 5225522-5 (Version None)
Quarter: 2007Q1

REPORT INFORMATION
  Report Type: 
  Country: None (occurrence: None)
  Receive Date: 20070131
  Receipt Date: 20070119
  Transmission Date: 20070707
  Serious: Yes (Other)
  Sender: FDA-Public Use
  Company Number: US-PFIZER INC-2007005626

PATIENT
  Sex: Female
  Weight: 59.9 kg

DRUGS (2)
  1. DEPO-PROVERA [Suspect]
     Indication: OVARIAN CYST
     Dosage: FREQ:EVERY 3 MONTHS
     Route: 030
  2. VITAMIN CAP [Concomitant]

REACTIONS (18)
  - BLOOD OESTROGEN DECREASED [None]
  - BLOOD PRESSURE INCREASED [None]
  - DEPRESSION [None]
  - DYSPNOEA [None]
  - EPINEPHRINE INCREASED [None]
  - HYPERHIDROSIS [None]
  - HYPERTHYROIDISM [None]
  - IRRITABILITY [None]
  - MUSCLE ATROPHY [None]
  - NERVOUSNESS [None]
  - NIGHT SWEATS [None]
  - PALPITATIONS [None]
  - PHAEOCHROMOCYTOMA [None]
  - SINUS TACHYCARDIA [None]
  - TEMPERATURE INTOLERANCE [None]
  - TREMOR [None]
  - VOMITING [None]
  - WEIGHT DECREASED [None]
